FAERS Safety Report 9787650 (Version 1)
Quarter: 2013Q4

REPORT INFORMATION
  Report Type: Spontaneous
  Country: JP (occurrence: JP)
  Receive Date: 20131230
  Receipt Date: 20131230
  Transmission Date: 20140711
  Serious: Yes (Other)
  Sender: FDA-Public Use
  Company Number: JP-JNJFOC-20131216885

PATIENT
  Age: 80 Year
  Sex: Female

DRUGS (1)
  1. FINIBAX [Suspect]
     Indication: INFECTIVE SPONDYLITIS
     Route: 041
     Dates: start: 20131127, end: 20131211

REACTIONS (3)
  - Haemoglobin decreased [Recovered/Resolved]
  - Platelet count decreased [Recovered/Resolved]
  - White blood cell count decreased [Recovered/Resolved]
